FAERS Safety Report 10004775 (Version 2)
Quarter: 2014Q1

REPORT INFORMATION
  Report Type: Spontaneous
  Country: FR (occurrence: FR)
  Receive Date: 20140312
  Receipt Date: 20140324
  Transmission Date: 20141002
  Serious: Yes (Other)
  Sender: FDA-Public Use
  Company Number: FR-GLAXOSMITHKLINE-B0974294A

PATIENT
  Age: 26 Year
  Sex: Female
  Weight: 62 kg

DRUGS (2)
  1. LAMICTAL [Suspect]
     Indication: EPILEPSY
     Dosage: 800MG PER DAY
     Route: 048
     Dates: start: 20140114, end: 20140114
  2. LAMICTAL [Concomitant]
     Indication: EPILEPSY
     Dosage: 50MG FOUR TIMES PER DAY
     Dates: end: 201401

REACTIONS (10)
  - Confusional state [Recovered/Resolved]
  - Vomiting [Recovered/Resolved]
  - Vertigo [Recovered/Resolved]
  - Cerebellar syndrome [Recovered/Resolved]
  - Nausea [Recovered/Resolved]
  - Muscle disorder [Recovered/Resolved]
  - Eye disorder [Recovered/Resolved]
  - Drug dispensing error [Unknown]
  - Incorrect dose administered [Unknown]
  - Medication error [Unknown]
